FAERS Safety Report 25760448 (Version 2)
Quarter: 2025Q3

REPORT INFORMATION
  Report Type: Spontaneous
  Country: US (occurrence: US)
  Receive Date: 20250904
  Receipt Date: 20250911
  Transmission Date: 20251020
  Serious: Yes (Hospitalization)
  Sender: MERCK SHARP & DOHME LLC
  Company Number: US-009507513-2323725

PATIENT
  Age: 67 Year
  Sex: Male

DRUGS (10)
  1. KEYTRUDA [Suspect]
     Active Substance: PEMBROLIZUMAB
     Indication: Epiglottic cancer
     Route: 042
     Dates: start: 20250721
  2. FLUOROURACIL [Concomitant]
     Active Substance: FLUOROURACIL
  3. CARBOPLATIN [Concomitant]
     Active Substance: CARBOPLATIN
  4. PANTOPRAZOLE [Concomitant]
     Active Substance: PANTOPRAZOLE
     Dosage: 40 MG DAILY
  5. ONDANSETRON [Concomitant]
     Active Substance: ONDANSETRON
     Indication: Nausea
  6. OLANZAPINE [Concomitant]
     Active Substance: OLANZAPINE
  7. NARCAN [Concomitant]
     Active Substance: NALOXONE HYDROCHLORIDE
  8. TRELEGY ELLIPTA [Concomitant]
     Active Substance: FLUTICASONE FUROATE\UMECLIDINIUM BROMIDE\VILANTEROL TRIFENATATE
  9. ASPIRIN [Concomitant]
     Active Substance: ASPIRIN
     Dosage: 81 MG DAILY
  10. ALBUTEROL [Concomitant]
     Active Substance: ALBUTEROL

REACTIONS (2)
  - Airway compression [Recovered/Resolved]
  - Anaphylactic reaction [Recovered/Resolved]

NARRATIVE: CASE EVENT DATE: 20250721
